FAERS Safety Report 13101338 (Version 2)
Quarter: 2017Q2

REPORT INFORMATION
  Report Type: Report from Study
  Country: CA (occurrence: CA)
  Receive Date: 20170110
  Receipt Date: 20170607
  Transmission Date: 20170830
  Serious: Yes (Death, Hospitalization)
  Sender: FDA-Public Use
  Company Number: CA-HLSUS-2017-CA-000017

PATIENT
  Age: 74 Year
  Sex: Male

DRUGS (1)
  1. CLOZARIL [Suspect]
     Active Substance: CLOZAPINE
     Indication: SCHIZOPHRENIA
     Route: 048
     Dates: end: 2011

REACTIONS (13)
  - Hyperlipidaemia [Fatal]
  - Hypothyroidism [Unknown]
  - Eosinophilia [Unknown]
  - Chronic kidney disease [Unknown]
  - Autism spectrum disorder [Unknown]
  - Hypotension [Unknown]
  - Thrombocytopenia [Unknown]
  - Schizophrenia [Fatal]
  - Osteoporosis [Unknown]
  - Cataract [Unknown]
  - Water intoxication [Unknown]
  - Coronary artery disease [Fatal]
  - Anaemia [Unknown]

NARRATIVE: CASE EVENT DATE: 2012
